FAERS Safety Report 6078965 (Version 2)
Quarter: 2018Q3

REPORT INFORMATION
  Report Type: Spontaneous
  Country: GB (occurrence: GB)
  Receive Date: 20060626
  Receipt Date: 20180919
  Transmission Date: 20181010
  Serious: Yes (Life-Threatening, Hospitalization)
  Sender: FDA-Public Use
  Company Number: GXKR2006GB03316

PATIENT
  Age: 73 Year
  Sex: Male

DRUGS (1)
  1. METFORMIN [Suspect]
     Active Substance: METFORMIN HYDROCHLORIDE
     Indication: TYPE 2 DIABETES MELLITUS
     Dosage: 2000 MG (1700?2000 MG), UNK
     Route: 065

REACTIONS (5)
  - Confusional state [Recovering/Resolving]
  - Hypotension [Unknown]
  - Acute kidney injury [Recovering/Resolving]
  - Lactic acidosis [Recovered/Resolved]
  - Vomiting [Recovering/Resolving]
